FAERS Safety Report 7321465-1 (Version None)
Quarter: 2011Q1

REPORT INFORMATION
  Report Type: 
  Country: None (occurrence: None)
  Receive Date: 20110228
  Receipt Date: 20100610
  Transmission Date: 20110831
  Serious: No
  Sender: FDA-Public Use
  Company Number: US-PFIZER INC-2010064216

PATIENT
  Sex: Male

DRUGS (6)
  1. AMBIEN [Concomitant]
     Dosage: 10 MG, 4X/DAY
  2. PROZAC [Concomitant]
     Indication: DEPRESSION
     Dosage: 20 MG, 2X/DAY
  3. PROPRANOLOL [Concomitant]
     Indication: ANXIETY
     Dosage: 20 MG, UNK
  4. GEODON [Suspect]
     Indication: DEPRESSION
     Dosage: 60 MG, 4X/DAY
     Route: 048
     Dates: start: 20100202
  5. DESIPRAMINE [Concomitant]
     Dosage: 25 MG, 2X/DAY
  6. CLORAZEPATE DIPOTASSIUM [Concomitant]
     Dosage: 7.5 MG, 4X/DAY

REACTIONS (1)
  - EJACULATION FAILURE [None]
